FAERS Safety Report 25884447 (Version 2)
Quarter: 2025Q4

REPORT INFORMATION
  Report Type: Spontaneous
  Country: US (occurrence: US)
  Receive Date: 20251006
  Receipt Date: 20251113
  Transmission Date: 20260118
  Serious: Yes (Hospitalization)
  Sender: INCYTE
  Company Number: US-INCYTE CORPORATION-2025IN010815

PATIENT
  Age: 90 Year

DRUGS (1)
  1. JAKAFI [Suspect]
     Active Substance: RUXOLITINIB
     Indication: Polycythaemia vera
     Dosage: 5MG BID ON MONDAY, WEDNESDAY, AND FRIDAY AND 5MG QD ON SUNDAY, TUESDAY, THURSDAY, AND SATURDAY

REACTIONS (3)
  - Fall [Unknown]
  - Gait disturbance [Unknown]
  - Balance disorder [Unknown]
